FAERS Safety Report 6824495-9 (Version None)
Quarter: 2010Q3

REPORT INFORMATION
  Report Type: 
  Country: None (occurrence: None)
  Receive Date: 20100708
  Receipt Date: 20061214
  Transmission Date: 20110219
  Serious: No
  Sender: FDA-Public Use
  Company Number: US-PFIZER INC-2006128418

PATIENT
  Sex: Female
  Weight: 78.02 kg

DRUGS (12)
  1. CHANTIX [Suspect]
     Indication: SMOKING CESSATION THERAPY
     Dates: start: 20061004
  2. OMACOR [Concomitant]
  3. POTASSIUM CHLORIDE [Concomitant]
  4. ISOSORBIDE [Concomitant]
  5. GLUCOPHAGE [Concomitant]
  6. VYTORIN [Concomitant]
  7. NEXIUM [Concomitant]
  8. CYMBALTA [Concomitant]
  9. TOPROL-XL [Concomitant]
  10. PLAVIX [Concomitant]
  11. HYZAAR [Concomitant]
  12. PREMARIN [Concomitant]

REACTIONS (1)
  - DRUG INEFFECTIVE [None]
